FAERS Safety Report 14254055 (Version 1)
Quarter: 2017Q4

REPORT INFORMATION
  Report Type: Report from Study
  Country: FR (occurrence: FR)
  Receive Date: 20171206
  Receipt Date: 20171206
  Transmission Date: 20180321
  Serious: Yes (Hospitalization, Other)
  Sender: FDA-Public Use
  Company Number: FR-ROCHE-2030987

PATIENT
  Age: 49 Year
  Sex: Female

DRUGS (1)
  1. RITUXIMAB. [Suspect]
     Active Substance: RITUXIMAB
     Indication: IMMUNE THROMBOCYTOPENIC PURPURA
     Route: 065
     Dates: start: 20110215

REACTIONS (10)
  - Ischaemic stroke [Recovered/Resolved with Sequelae]
  - Skin infection [Recovered/Resolved]
  - Neuropathy peripheral [Recovered/Resolved]
  - Gastroenteritis [Recovered/Resolved]
  - Influenza [Recovered/Resolved]
  - Uterine atrophy [Recovered/Resolved]
  - Lung disorder [Recovered/Resolved]
  - Metrorrhagia [Recovered/Resolved]
  - Sciatica [Recovered/Resolved]
  - Carpal tunnel decompression [Recovered/Resolved]

NARRATIVE: CASE EVENT DATE: 201201
